FAERS Safety Report 9099841 (Version 4)
Quarter: 2013Q4

REPORT INFORMATION
  Report Type: Report from Study
  Country: BR (occurrence: BR)
  Receive Date: 20130215
  Receipt Date: 20131021
  Transmission Date: 20140711
  Serious: Yes (Hospitalization, Other)
  Sender: FDA-Public Use
  Company Number: PHHY2013BR013070

PATIENT
  Sex: Female

DRUGS (2)
  1. DIOVAN [Suspect]
     Indication: HYPERTENSION
     Dosage: 2 DF (160 MG), DAILY
  2. DIOVAN [Suspect]
     Dosage: 2 DF (320 MG) DAILY
     Route: 048

REACTIONS (3)
  - Infarction [Recovering/Resolving]
  - Blood pressure increased [Unknown]
  - Drug ineffective [Unknown]
